FAERS Safety Report 9909406 (Version 1)
Quarter: 2014Q1

REPORT INFORMATION
  Report Type: Spontaneous
  Country: US (occurrence: None)
  Receive Date: 20140214
  Receipt Date: 20140214
  Transmission Date: 20141002
  Serious: No
  Sender: FDA-Public Use
  Company Number: None

PATIENT
  Age: 70 Year
  Sex: Male

DRUGS (11)
  1. LIDOCAINE [Suspect]
     Route: 062
  2. CELEBREX [Concomitant]
  3. LIBRIUM [Concomitant]
  4. NICOTINE PATCH [Concomitant]
  5. THIAMINE [Concomitant]
  6. AMLODIPINE [Concomitant]
  7. ATENOLOL [Concomitant]
  8. LISINOPRIL [Concomitant]
  9. MULTIVITAMIN [Concomitant]
  10. SIMVASTATIN [Concomitant]
  11. VICODIN [Concomitant]

REACTIONS (1)
  - Application site rash [None]
